FAERS Safety Report 4962874-5 (Version None)
Quarter: 2006Q2

REPORT INFORMATION
  Report Type: 
  Country: None (occurrence: None)
  Receive Date: 20060403
  Receipt Date: 20060403
  Transmission Date: 20061013
  Serious: Yes (Other)
  Sender: FDA-Public Use
  Company Number: None

PATIENT
  Age: 52 Year
  Sex: Female
  Weight: 63.5036 kg

DRUGS (1)
  1. EFFEXOR [Suspect]
     Indication: DEPRESSION
     Dosage: 150MG    1X A DAY   PO
     Route: 048
     Dates: start: 20040101, end: 20060401

REACTIONS (8)
  - ARTHRALGIA [None]
  - DRUG DOSE OMISSION [None]
  - FEAR [None]
  - IMPAIRED WORK ABILITY [None]
  - OEDEMA PERIPHERAL [None]
  - PARAESTHESIA [None]
  - TINNITUS [None]
  - VERTIGO [None]
